FAERS Safety Report 14319222 (Version 1)
Quarter: 2017Q4

REPORT INFORMATION
  Report Type: Spontaneous
  Country: US (occurrence: US)
  Receive Date: 20171222
  Receipt Date: 20171222
  Transmission Date: 20180321
  Serious: Yes (Other)
  Sender: FDA-Public Use
  Company Number: US-PFIZER INC-2017543586

PATIENT
  Sex: Female

DRUGS (4)
  1. BRIVIACT [Suspect]
     Active Substance: BRIVARACETAM
     Dosage: 50 MG, UNK
  2. LYRICA [Suspect]
     Active Substance: PREGABALIN
     Dosage: 300 MG, 2X/DAY (2 PILLS 2X PER DAY)
  3. BRIVIACT [Suspect]
     Active Substance: BRIVARACETAM
     Dosage: 75 MG, 1X/DAY (AT NIGHT ON FRIDAY)
  4. BRIVIACT [Suspect]
     Active Substance: BRIVARACETAM
     Dosage: 75 MG, 2X/DAY

REACTIONS (6)
  - Discomfort [Unknown]
  - Seizure [Not Recovered/Not Resolved]
  - Dry mouth [Unknown]
  - Alopecia [Unknown]
  - Somnolence [Unknown]
  - Blood glucose increased [Unknown]
